FAERS Safety Report 6553757-8 (Version None)
Quarter: 2010Q1

REPORT INFORMATION
  Report Type: 
  Country: None (occurrence: None)
  Receive Date: 20100127
  Receipt Date: 20100118
  Transmission Date: 20100710
  Serious: Yes (Life-Threatening, Hospitalization)
  Sender: FDA-Public Use
  Company Number: JP-BRISTOL-MYERS SQUIBB COMPANY-14427223

PATIENT
  Age: 69 Year
  Sex: Male
  Weight: 50 kg

DRUGS (17)
  1. ERBITUX [Suspect]
     Indication: RECTAL CANCER
     Route: 042
     Dates: start: 20081128, end: 20081128
  2. SAXIZON [Concomitant]
     Route: 041
     Dates: start: 20081128, end: 20081128
  3. EPINEPHRINE HCL + ARTICAINE HCL [Concomitant]
     Route: 058
     Dates: start: 20081128, end: 20081128
  4. CATABON [Concomitant]
     Route: 042
  5. DECADRON [Concomitant]
     Indication: PREMEDICATION
     Dosage: FORMULATION: TABLET, 16DF
     Route: 048
     Dates: start: 20081128
  6. DECADRON [Concomitant]
     Indication: PROPHYLAXIS
     Dosage: FORMULATION: TABLET, 16DF
     Route: 048
     Dates: start: 20081128
  7. RESTAMIN [Concomitant]
     Indication: PREMEDICATION
     Dosage: 5 DOSAGE FORM = 5 TABLETS.
     Route: 048
     Dates: start: 20081128
  8. RESTAMIN [Concomitant]
     Indication: PROPHYLAXIS
     Dosage: 5 DOSAGE FORM = 5 TABLETS.
     Route: 048
     Dates: start: 20081128
  9. KYTRIL [Concomitant]
     Indication: PROPHYLAXIS
     Dosage: INJ
     Route: 042
     Dates: start: 20081128, end: 20081128
  10. KYTRIL [Concomitant]
     Indication: PREMEDICATION
     Dosage: INJ
     Route: 042
     Dates: start: 20081128, end: 20081128
  11. AMARYL [Concomitant]
     Indication: DIABETES MELLITUS
     Dosage: FORMULATION: TAB
     Route: 048
     Dates: start: 20081114
  12. NEO-MINOPHAGEN C [Concomitant]
     Route: 041
     Dates: start: 20081128, end: 20081128
  13. CALONAL [Concomitant]
     Indication: PROPHYLAXIS
     Dosage: FORMULATION: TAB
     Route: 048
     Dates: start: 20081128, end: 20081128
  14. GLUCOBAY [Concomitant]
     Indication: DIABETES MELLITUS
     Dosage: FORMULATION: TAB
     Route: 048
     Dates: start: 20081114
  15. EURODIN [Concomitant]
     Dosage: FORMULATION: TAB
     Route: 048
  16. PRIMPERAN TAB [Concomitant]
     Indication: PROPHYLAXIS
     Dosage: FORMULATION: TAB
     Route: 048
  17. SODIUM BICARBONATE [Concomitant]
     Indication: PROPHYLAXIS
     Dosage: FORMULATION: TAB
     Route: 048

REACTIONS (2)
  - ANAPHYLACTIC SHOCK [None]
  - INFUSION RELATED REACTION [None]
